FAERS Safety Report 8625081-0 (Version None)
Quarter: 2012Q3

REPORT INFORMATION
  Report Type: 
  Country: None (occurrence: None)
  Receive Date: 20120827
  Receipt Date: 20120823
  Transmission Date: 20120928
  Serious: Yes (Hospitalization)
  Sender: FDA-Public Use
  Company Number: US-GLAXOSMITHKLINE-A0949716A

PATIENT
  Sex: Female

DRUGS (4)
  1. FLOVENT [Suspect]
     Indication: PRODUCTIVE COUGH
     Dosage: 1PUFF TWICE PER DAY
     Route: 055
     Dates: start: 20111201, end: 20120601
  2. VENTOLIN HFA [Suspect]
     Indication: PRODUCTIVE COUGH
     Dosage: 1PUFF AS REQUIRED
     Route: 055
  3. PREDNISONE TAB [Suspect]
     Route: 065
  4. NO CONCURRENT MEDICATION [Concomitant]

REACTIONS (6)
  - DYSPNOEA [None]
  - INHALATION THERAPY [None]
  - OVERDOSE [None]
  - PRODUCT QUALITY ISSUE [None]
  - SPINAL COMPRESSION FRACTURE [None]
  - SPINAL DISORDER [None]
